FAERS Safety Report 9675199 (Version 3)
Quarter: 2014Q3

REPORT INFORMATION
  Report Type: Spontaneous
  Country: US (occurrence: US)
  Receive Date: 20131107
  Receipt Date: 20140709
  Transmission Date: 20150326
  Serious: Yes (Hospitalization, Disabling, Other)
  Sender: FDA-Public Use
  Company Number: US-009507513-2010SP020851

PATIENT
  Sex: Female
  Weight: 99.79 kg

DRUGS (1)
  1. NUVARING [Suspect]
     Active Substance: ETHINYL ESTRADIOL\ETONOGESTREL
     Indication: CONTRACEPTION
     Route: 067
     Dates: start: 20090629, end: 201001

REACTIONS (7)
  - Pulmonary embolism [Unknown]
  - Pneumonia [Unknown]
  - Wolff-Parkinson-White syndrome [Unknown]
  - Heart rate irregular [Unknown]
  - Maternal exposure before pregnancy [Recovered/Resolved]
  - High risk pregnancy [Recovered/Resolved]
  - Systolic dysfunction [Unknown]

NARRATIVE: CASE EVENT DATE: 201001
